APPROVED DRUG PRODUCT: DETROL
Active Ingredient: TOLTERODINE TARTRATE
Strength: 2MG
Dosage Form/Route: TABLET;ORAL
Application: N020771 | Product #002 | TE Code: AB
Applicant: UPJOHN US 2 LLC
Approved: Mar 25, 1998 | RLD: Yes | RS: Yes | Type: RX